FAERS Safety Report 25656614 (Version 1)
Quarter: 2025Q3

REPORT INFORMATION
  Report Type: Spontaneous
  Country: US (occurrence: US)
  Receive Date: 20250807
  Receipt Date: 20250807
  Transmission Date: 20251021
  Serious: No
  Sender: MERCK SHARP & DOHME LLC
  Company Number: US-009507513-2309579

PATIENT
  Age: 36 Year
  Sex: Female

DRUGS (8)
  1. POSACONAZOLE [Suspect]
     Active Substance: POSACONAZOLE
     Indication: Evidence based treatment
     Route: 065
  2. MYCOPHENOLIC ACID [Concomitant]
     Active Substance: MYCOPHENOLIC ACID
  3. TACROLIMUS [Concomitant]
     Active Substance: TACROLIMUS
  4. PREDNISONE [Concomitant]
     Active Substance: PREDNISONE
  5. piperacilin-tazobactam [Concomitant]
  6. ATOVAQUONE [Concomitant]
     Active Substance: ATOVAQUONE
  7. FLUCONAZOLE [Concomitant]
     Active Substance: FLUCONAZOLE
  8. VALGANCICLOVIR [Concomitant]
     Active Substance: VALGANCICLOVIR

REACTIONS (1)
  - Product use in unapproved indication [Unknown]
